FAERS Safety Report 5260953-9 (Version None)
Quarter: 2007Q1

REPORT INFORMATION
  Report Type: 
  Country: None (occurrence: None)
  Receive Date: 20070309
  Receipt Date: 20051028
  Transmission Date: 20070707
  Serious: Yes (Life-Threatening, Hospitalization)
  Sender: FDA-Public Use
  Company Number: FR-BRISTOL-MYERS SQUIBB COMPANY-13142880

PATIENT
  Age: 51 Year
  Sex: Male

DRUGS (3)
  1. CETUXIMAB [Suspect]
     Indication: SQUAMOUS CELL CARCINOMA
     Route: 041
     Dates: start: 20050614, end: 20050614
  2. CISPLATIN [Suspect]
     Indication: SQUAMOUS CELL CARCINOMA
     Route: 042
     Dates: start: 20050614, end: 20050614
  3. FLUOROURACIL [Suspect]
     Indication: SQUAMOUS CELL CARCINOMA
     Route: 042
     Dates: start: 20050614, end: 20050614

REACTIONS (3)
  - DEHYDRATION [None]
  - RENAL FAILURE [None]
  - VOMITING [None]
